FAERS Safety Report 25923025 (Version 1)
Quarter: 2025Q4

REPORT INFORMATION
  Report Type: Spontaneous
  Country: AU (occurrence: AU)
  Receive Date: 20251015
  Receipt Date: 20251015
  Transmission Date: 20260117
  Serious: Yes (Other)
  Sender: AUROBINDO
  Company Number: AU-AUROBINDO-AUR-APL-2025-051720

PATIENT
  Age: 24 Year
  Sex: Female

DRUGS (5)
  1. PIPERACILLIN SODIUM\TAZOBACTAM SODIUM [Suspect]
     Active Substance: PIPERACILLIN SODIUM\TAZOBACTAM SODIUM
     Indication: Sepsis
     Dosage: UNK
     Route: 065
  2. VANCOMYCIN [Suspect]
     Active Substance: VANCOMYCIN
     Indication: Mucormycosis
     Dosage: UNK
     Route: 065
  3. LINCOMYCIN [Concomitant]
     Active Substance: LINCOMYCIN
     Indication: Mucormycosis
     Dosage: UNK
     Route: 065
  4. POSACONAZOLE [Concomitant]
     Active Substance: POSACONAZOLE
     Indication: Mucormycosis
     Dosage: 300 MILLIGRAM, TWO TIMES A DAY
     Route: 065
  5. AMPHOTERICIN B [Concomitant]
     Active Substance: AMPHOTERICIN B
     Indication: Mucormycosis
     Dosage: 450 MILLIGRAM, DAILY
     Route: 042

REACTIONS (1)
  - Drug ineffective [Unknown]
